FAERS Safety Report 12645394 (Version 1)
Quarter: 2016Q3

REPORT INFORMATION
  Report Type: Spontaneous
  Country: US (occurrence: US)
  Receive Date: 20160811
  Receipt Date: 20160811
  Transmission Date: 20161109
  Serious: No
  Sender: FDA-Public Use
  Company Number: US-JAZZ-2016-US-004630

PATIENT
  Sex: Female

DRUGS (21)
  1. SUBOXONE [Concomitant]
     Active Substance: BUPRENORPHINE HYDROCHLORIDE\NALOXONE HYDROCHLORIDE
  2. LEVEMIR [Concomitant]
     Active Substance: INSULIN DETEMIR
  3. GABAPENTIN. [Concomitant]
     Active Substance: GABAPENTIN
  4. XYREM [Suspect]
     Active Substance: SODIUM OXYBATE
     Indication: NARCOLEPSY
     Dosage: 2.25 G, BID
     Route: 048
     Dates: start: 201404, end: 201405
  5. SYNTHROID [Concomitant]
     Active Substance: LEVOTHYROXINE SODIUM
  6. TOPAMAX [Concomitant]
     Active Substance: TOPIRAMATE
  7. NOVOLOG [Concomitant]
     Active Substance: INSULIN ASPART
  8. HYDROCODONE/ACETAMINOPHEN [Concomitant]
     Active Substance: ACETAMINOPHEN\HYDROCODONE
  9. EFFEXOR XR EXTENDED-RELEASE [Concomitant]
     Active Substance: VENLAFAXINE HYDROCHLORIDE
  10. XYREM [Suspect]
     Active Substance: SODIUM OXYBATE
     Indication: CATAPLEXY
     Dosage: DOSE ADJUSTMENTS
     Route: 048
     Dates: start: 2014, end: 2014
  11. XYREM [Suspect]
     Active Substance: SODIUM OXYBATE
     Dosage: 4.5 G, BID
     Route: 048
     Dates: start: 201406
  12. NUVIGIL [Concomitant]
     Active Substance: ARMODAFINIL
  13. ALPRAZOLAM. [Concomitant]
     Active Substance: ALPRAZOLAM
  14. ALPRAZOLAM ER [Concomitant]
     Active Substance: ALPRAZOLAM
  15. OMEPRAZOLE DR [Concomitant]
     Active Substance: OMEPRAZOLE
  16. ABILIFY [Concomitant]
     Active Substance: ARIPIPRAZOLE
  17. LAMICTAL [Concomitant]
     Active Substance: LAMOTRIGINE
  18. LASIX [Concomitant]
     Active Substance: FUROSEMIDE
  19. RITALIN [Concomitant]
     Active Substance: METHYLPHENIDATE HYDROCHLORIDE
  20. LISINOPRIL. [Concomitant]
     Active Substance: LISINOPRIL
  21. LAMICTAL XR [Concomitant]
     Active Substance: LAMOTRIGINE

REACTIONS (1)
  - Hypertension [Unknown]
